FAERS Safety Report 8377559-5 (Version None)
Quarter: 2012Q2

REPORT INFORMATION
  Report Type: 
  Country: None (occurrence: None)
  Receive Date: 20120522
  Receipt Date: 20120514
  Transmission Date: 20120825
  Serious: Yes (Other)
  Sender: FDA-Public Use
  Company Number: US-JNJFOC-20120513631

PATIENT
  Sex: Female
  Weight: 70.31 kg

DRUGS (1)
  1. STELARA [Suspect]
     Indication: PSORIASIS
     Route: 058
     Dates: start: 20110402

REACTIONS (2)
  - HEARING IMPAIRED [None]
  - DRUG DOSE OMISSION [None]
